FAERS Safety Report 4513498-5 (Version None)
Quarter: 2004Q4

REPORT INFORMATION
  Report Type: 
  Country: None (occurrence: None)
  Receive Date: 20041124
  Receipt Date: 20041116
  Transmission Date: 20050328
  Serious: Yes (Hospitalization, Other)
  Sender: FDA-Public Use
  Company Number: DEWYE143626OCT04

PATIENT
  Age: 31 Year
  Sex: Female

DRUGS (1)
  1. EFFEXOR XR [Suspect]
     Dosage: 10 CAPSULES (OVERDOSE AMOUNT 750 MG)
     Route: 048
     Dates: start: 20041025, end: 20041025

REACTIONS (4)
  - ACIDOSIS [None]
  - COMA [None]
  - MULTIPLE DRUG OVERDOSE INTENTIONAL [None]
  - TACHYCARDIA [None]
